FAERS Safety Report 6269538-9 (Version None)
Quarter: 2009Q3

REPORT INFORMATION
  Report Type: 
  Country: None (occurrence: None)
  Receive Date: 20090714
  Receipt Date: 20090709
  Transmission Date: 20100115
  Serious: Yes (Hospitalization)
  Sender: FDA-Public Use
  Company Number: FR-GUERBET-20090099

PATIENT
  Age: 39 Year

DRUGS (9)
  1. HEXABRIX [Suspect]
     Indication: ARTERIOGRAM CORONARY
     Dosage: INTRAVENOUS
     Route: 042
     Dates: start: 20090624, end: 20090624
  2. SECTRAL: UNKNOWN / ACEBUTOLOL [Concomitant]
  3. PROCORALAN: UNKNOWN / IVABRADINE [Concomitant]
  4. AZANTAC: UNKNOWN / RANITIDINE [Concomitant]
  5. OMACOR: UNKNOWN / DOCOSAHEXAENOIC ACID - EICOSAPENTAENOIC ACID - A-TOC [Concomitant]
  6. KARDEGIC: UNKNOWN / LYSINE ACETYLSALICYLATE [Concomitant]
  7. PLAVIX: UNKNOWN / CLOPIDOGREL [Concomitant]
  8. TAHOR: UNKNOWN / ATORVASTATIN [Concomitant]
  9. COVERSYL: UNKNOWN / PERINDOPRIL [Concomitant]

REACTIONS (2)
  - ANAPHYLACTIC SHOCK [None]
  - DRUG INTERACTION [None]
